FAERS Safety Report 11043150 (Version 1)
Quarter: 2015Q2

REPORT INFORMATION
  Report Type: Spontaneous
  Country: US (occurrence: None)
  Receive Date: 20150416
  Receipt Date: 20150416
  Transmission Date: 20150821
  Serious: Yes (Hospitalization)
  Sender: FDA-Public Use
  Company Number: None

PATIENT
  Age: 77 Year
  Sex: Male
  Weight: 74.9 kg

DRUGS (1)
  1. MELOXICAM. [Suspect]
     Active Substance: MELOXICAM
     Indication: PAIN
     Route: 048
     Dates: start: 20140417, end: 20150227

REACTIONS (7)
  - Heart rate increased [None]
  - Duodenal ulcer [None]
  - Dizziness postural [None]
  - Anaemia [None]
  - Gastric haemorrhage [None]
  - Faeces discoloured [None]
  - Back pain [None]

NARRATIVE: CASE EVENT DATE: 20150227
